FAERS Safety Report 5405093-0 (Version None)
Quarter: 2007Q3

REPORT INFORMATION
  Report Type: 
  Country: None (occurrence: None)
  Receive Date: 20070803
  Receipt Date: 20070723
  Transmission Date: 20080115
  Serious: Yes (Hospitalization)
  Sender: FDA-Public Use
  Company Number: BR-ROCHE-508692

PATIENT
  Sex: Female
  Weight: 78 kg

DRUGS (2)
  1. ISOTRETINOIN [Suspect]
     Indication: ACNE
     Dosage: STRENGTH REPORTED AS 10 + 20 MG/CAPSULE.
     Route: 048
     Dates: start: 20070530, end: 20070709
  2. DIANE 35 [Concomitant]
     Route: 048
     Dates: start: 20070530

REACTIONS (2)
  - ANAEMIA [None]
  - ERYTHEMA NODOSUM [None]
